FAERS Safety Report 7538577-X (Version None)
Quarter: 2011Q2

REPORT INFORMATION
  Report Type: 
  Country: None (occurrence: None)
  Receive Date: 20110610
  Receipt Date: 20110602
  Transmission Date: 20111010
  Serious: No
  Sender: FDA-Public Use
  Company Number: US-BIOGENIDEC-2011BI011591

PATIENT
  Age: 26 Year
  Sex: Female

DRUGS (2)
  1. TYSABRI [Suspect]
     Indication: MULTIPLE SCLEROSIS
     Route: 042
     Dates: start: 20110302
  2. REBIF [Concomitant]
     Indication: MULTIPLE SCLEROSIS

REACTIONS (8)
  - LOCAL SWELLING [None]
  - DEPRESSION [None]
  - INFLAMMATION [None]
  - BACK PAIN [None]
  - FATIGUE [None]
  - HEADACHE [None]
  - STRESS [None]
  - DIZZINESS [None]
